FAERS Safety Report 6433644-6 (Version None)
Quarter: 2009Q4

REPORT INFORMATION
  Report Type: 
  Country: None (occurrence: None)
  Receive Date: 20091110
  Receipt Date: 20091103
  Transmission Date: 20100525
  Serious: Yes (Hospitalization)
  Sender: FDA-Public Use
  Company Number: PHHO2009NL10168

PATIENT
  Sex: Female
  Weight: 72 kg

DRUGS (2)
  1. ERL 080A ERL+TAB [Suspect]
     Indication: LUNG TRANSPLANT
     Dosage: OPEN LABEL
     Route: 048
     Dates: start: 20081126, end: 20090209
  2. RAD 666 RAD+TAB+PTR [Suspect]
     Indication: LUNG TRANSPLANT
     Dosage: OPEN LABEL
     Dates: start: 20090209

REACTIONS (2)
  - DYSPNOEA [None]
  - PULMONARY EMBOLISM [None]
